FAERS Safety Report 7353082-1 (Version None)
Quarter: 2011Q1

REPORT INFORMATION
  Report Type: 
  Country: None (occurrence: None)
  Receive Date: 20110315
  Receipt Date: 20110304
  Transmission Date: 20110831
  Serious: Yes (Other)
  Sender: FDA-Public Use
  Company Number: B0705809A

PATIENT
  Sex: Female

DRUGS (1)
  1. NEOTIGASON [Suspect]
     Route: 065

REACTIONS (3)
  - CONDITION AGGRAVATED [None]
  - PANCYTOPENIA [None]
  - WHITE BLOOD CELL COUNT DECREASED [None]
